FAERS Safety Report 10100884 (Version 1)
Quarter: 2014Q2

REPORT INFORMATION
  Report Type: Spontaneous
  Country: ZA (occurrence: ZA)
  Receive Date: 20140423
  Receipt Date: 20140423
  Transmission Date: 20141212
  Serious: Yes (Other)
  Sender: FDA-Public Use
  Company Number: ZA-ELI_LILLY_AND_COMPANY-ZA201404004385

PATIENT
  Age: 8 Year
  Sex: Female

DRUGS (1)
  1. HUMATROPE [Suspect]
     Indication: GROWTH HORMONE DEFICIENCY
     Dosage: UNK, UNKNOWN
     Route: 065

REACTIONS (2)
  - Prader-Willi syndrome [Unknown]
  - Convulsion [Recovered/Resolved]
